FAERS Safety Report 5127079-6 (Version None)
Quarter: 2006Q4

REPORT INFORMATION
  Report Type: 
  Country: None (occurrence: None)
  Receive Date: 20061013
  Receipt Date: 20061011
  Transmission Date: 20070319
  Serious: Yes (Other)
  Sender: FDA-Public Use
  Company Number: US-GLAXOSMITHKLINE-A0623182A

PATIENT
  Sex: Female

DRUGS (1)
  1. CITRUCEL SUGAR-FREE SUSPENSION ORANGE [Suspect]
     Route: 048

REACTIONS (4)
  - CHOKING [None]
  - COUGH [None]
  - FOREIGN BODY TRAUMA [None]
  - PHARMACEUTICAL PRODUCT COMPLAINT [None]
